FAERS Safety Report 9133729 (Version 1)
Quarter: 2013Q1

REPORT INFORMATION
  Report Type: Spontaneous
  Country: US (occurrence: US)
  Receive Date: 20130302
  Receipt Date: 20130302
  Transmission Date: 20140127
  Serious: No
  Sender: FDA-Public Use
  Company Number: US-ENDO PHARMACEUTICALS INC.-FRVA20110003

PATIENT
  Sex: Female

DRUGS (1)
  1. FROVA [Suspect]
     Indication: MIGRAINE
     Dosage: 2.5 MG
     Route: 048
     Dates: start: 20110118

REACTIONS (5)
  - Nasal congestion [Not Recovered/Not Resolved]
  - Hypoaesthesia [Not Recovered/Not Resolved]
  - Paraesthesia [Not Recovered/Not Resolved]
  - Chest pain [Not Recovered/Not Resolved]
  - Heart rate increased [Not Recovered/Not Resolved]
